FAERS Safety Report 8828251 (Version 1)
Quarter: 2012Q4

REPORT INFORMATION
  Report Type: 
  Country: CA (occurrence: CA)
  Receive Date: 20121005
  Receipt Date: 20121005
  Transmission Date: 20130627
  Serious: Yes (Other)
  Sender: FDA-Public Use
  Company Number: CA-SHIRE-ALL1-2012-04692

PATIENT
  Sex: Male

DRUGS (1)
  1. MEZAVANT [Suspect]
     Indication: PRODUCT USED FOR UNKNOWN INDICATION
     Dosage: 4.8 g, 1x/day:qd
     Route: 048

REACTIONS (2)
  - Agranulocytosis [Unknown]
  - Adverse drug reaction [Unknown]
